FAERS Safety Report 8990504 (Version 1)
Quarter: 2012Q4

REPORT INFORMATION
  Report Type: Report from Study
  Country: JP (occurrence: JP)
  Receive Date: 20121228
  Receipt Date: 20121228
  Transmission Date: 20130627
  Serious: Yes (Other)
  Sender: FDA-Public Use
  Company Number: JP-VERTEX PHARMACEUTICALS INC.-2012-026668

PATIENT
  Age: 56 Year
  Sex: Male

DRUGS (9)
  1. VX-950 (TELAPREVIR) [Suspect]
     Indication: CHRONIC HEPATITIS C
     Dosage: 2250 mg, qd
     Route: 048
     Dates: start: 20120620, end: 20120911
  2. REBETOL [Suspect]
     Indication: CHRONIC HEPATITIS C
     Dosage: 800 mg, qd
     Route: 048
     Dates: start: 20120620, end: 20120918
  3. REBETOL [Suspect]
     Dosage: 400 mg, qd
     Route: 048
     Dates: start: 20120919, end: 20121205
  4. PEGINTRON                          /01543001/ [Suspect]
     Indication: CHRONIC HEPATITIS C
     Dosage: 1.5 ?g/kg, qw
     Route: 058
     Dates: start: 20120620, end: 20120912
  5. PEGINTRON                          /01543001/ [Suspect]
     Dosage: 50 mcg/ week
     Route: 058
     Dates: start: 20120919, end: 20121205
  6. MUCOSTA [Concomitant]
     Dosage: 300 mg, qd
     Route: 048
     Dates: start: 20120621
  7. MARZULENE-S [Concomitant]
     Dosage: 2.01 g, qd
     Route: 048
     Dates: start: 20120621
  8. AMARYL [Concomitant]
     Dosage: 1 mg, qd
     Route: 048
     Dates: start: 20120622, end: 20120623
  9. GASTER [Concomitant]
     Dosage: 20 mg, qd
     Route: 048
     Dates: start: 20120621

REACTIONS (1)
  - Retinopathy [Recovered/Resolved]
